FAERS Safety Report 6154422-1 (Version None)
Quarter: 2009Q2

REPORT INFORMATION
  Report Type: 
  Country: None (occurrence: None)
  Receive Date: 20090414
  Receipt Date: 20090408
  Transmission Date: 20091009
  Serious: Yes (Hospitalization, Other)
  Sender: FDA-Public Use
  Company Number: US-PFIZER INC-2005104264

PATIENT
  Sex: Female
  Weight: 68 kg

DRUGS (4)
  1. PROVERA [Suspect]
     Indication: HORMONE REPLACEMENT THERAPY
     Route: 048
     Dates: start: 19920101, end: 19960101
  2. ESTRACE [Suspect]
     Indication: HORMONE REPLACEMENT THERAPY
     Route: 065
     Dates: start: 19920101, end: 19960101
  3. PRAVACHOL [Concomitant]
     Indication: BLOOD CHOLESTEROL
     Dosage: UNK
  4. BELLAMINE [Concomitant]
     Indication: HOT FLUSH
     Dosage: UNK

REACTIONS (1)
  - BREAST CANCER [None]
